FAERS Safety Report 5302554-X (Version None)
Quarter: 2007Q2

REPORT INFORMATION
  Report Type: 
  Country: None (occurrence: None)
  Receive Date: 20070419
  Receipt Date: 20070416
  Transmission Date: 20071010
  Serious: Yes (Death, Hospitalization)
  Sender: FDA-Public Use
  Company Number: FR-GENENTECH-239992

PATIENT
  Sex: Male

DRUGS (1)
  1. RITUXIMAB [Suspect]
     Indication: B-CELL LYMPHOMA

REACTIONS (1)
  - SEPTIC SHOCK [None]
